FAERS Safety Report 4557560-X (Version None)
Quarter: 2005Q1

REPORT INFORMATION
  Report Type: 
  Country: None (occurrence: None)
  Receive Date: 20050120
  Receipt Date: 20030605
  Transmission Date: 20050727
  Serious: Yes (Hospitalization, Other)
  Sender: FDA-Public Use
  Company Number: US-MERCK-0306USA00785

PATIENT
  Age: 62 Year
  Sex: Male

DRUGS (12)
  1. VIOXX [Suspect]
     Indication: BACK PAIN
     Route: 048
     Dates: start: 19990101
  2. VIOXX [Suspect]
     Route: 048
     Dates: start: 20010614
  3. VIOXX [Suspect]
     Indication: NECK PAIN
     Route: 048
     Dates: start: 19990101
  4. VIOXX [Suspect]
     Route: 048
     Dates: start: 20010614
  5. DIGOXIN [Concomitant]
     Route: 048
  6. PRAVASTATIN SODIUM [Concomitant]
     Route: 048
  7. CARTIA XT [Concomitant]
     Route: 048
  8. PLETAL [Concomitant]
     Route: 048
  9. VITAMIN E [Concomitant]
     Route: 048
  10. ASCORBIC ACID [Concomitant]
     Route: 048
  11. MINERALS (UNSPECIFIED) AND VITAMINS (UNSPECIFIED) [Concomitant]
     Route: 048
  12. FLOMAX [Concomitant]
     Route: 048

REACTIONS (20)
  - ACCELERATED HYPERTENSION [None]
  - ADENOMA BENIGN [None]
  - ADVERSE EVENT [None]
  - AMAUROSIS FUGAX [None]
  - ANGINA PECTORIS [None]
  - ANGIOPATHY [None]
  - BLADDER CANCER [None]
  - BLOOD PRESSURE INCREASED [None]
  - CARDIOMEGALY [None]
  - CAROTID ARTERY OCCLUSION [None]
  - CONVULSION [None]
  - CYSTITIS NONINFECTIVE [None]
  - ELECTROCARDIOGRAM ST SEGMENT ABNORMAL [None]
  - FEMORAL PULSE DECREASED [None]
  - MYOCARDIAL ISCHAEMIA [None]
  - NODULE [None]
  - PERIPHERAL VASCULAR DISORDER [None]
  - PROSTATITIS [None]
  - PULMONARY GRANULOMA [None]
  - TRANSIENT ISCHAEMIC ATTACK [None]
